FAERS Safety Report 6906881-1 (Version None)
Quarter: 2010Q3

REPORT INFORMATION
  Report Type: 
  Country: None (occurrence: None)
  Receive Date: 20100804
  Receipt Date: 20100713
  Transmission Date: 20110219
  Serious: Yes (Other)
  Sender: FDA-Public Use
  Company Number: PHHY2010AR17223

PATIENT
  Sex: Female

DRUGS (5)
  1. CLOZAPINE [Suspect]
     Indication: PSYCHOTIC DISORDER
     Dosage: 125 MG
     Route: 048
     Dates: start: 20100306, end: 20100630
  2. TRILEPTAL [Concomitant]
     Dosage: 300 MG
     Route: 048
     Dates: end: 20091001
  3. VENLAFAXINE [Concomitant]
     Indication: DEPRESSION
     Dosage: 75 MG
     Route: 048
     Dates: end: 20091001
  4. CLONAZEPAM [Concomitant]
     Indication: ANXIETY
     Dosage: 1.5 MG
     Route: 048
  5. SERTRALINE HYDROCHLORIDE [Concomitant]
     Dosage: UNK
     Route: 048
     Dates: start: 20090101

REACTIONS (2)
  - CAESAREAN SECTION [None]
  - DRUG EXPOSURE DURING PREGNANCY [None]
